FAERS Safety Report 8472528-9 (Version None)
Quarter: 2012Q2

REPORT INFORMATION
  Report Type: 
  Country: None (occurrence: None)
  Receive Date: 20120627
  Receipt Date: 20120624
  Transmission Date: 20120825
  Serious: Yes (Hospitalization)
  Sender: FDA-Public Use
  Company Number: US-PFIZER INC-2012151546

PATIENT
  Sex: Male
  Weight: 61.224 kg

DRUGS (7)
  1. NORVASC [Suspect]
     Indication: BLOOD PRESSURE ABNORMAL
     Dosage: 5 MG, 2X/DAY
  2. IBUPROFEN (ADVIL) [Suspect]
     Indication: PAIN IN EXTREMITY
     Dosage: UNK, TWICE DAILY
     Dates: start: 20120622
  3. IBUPROFEN (ADVIL) [Suspect]
     Indication: BACK PAIN
     Dosage: UNK,DAILY
     Dates: start: 20120601
  4. IBUPROFEN (ADVIL) [Suspect]
     Indication: ARTHRALGIA
  5. XANAX [Concomitant]
     Indication: PANIC ATTACK
     Dosage: 0.5 MG, DAILY
  6. BENICAR HCT [Suspect]
     Indication: BLOOD PRESSURE ABNORMAL
     Dosage: UNK,DAILY
  7. DORZOLAMIDE HYDROCHLORIDE AND TIMOLOL MALEATE [Concomitant]
     Indication: GLAUCOMA
     Dosage: 1 GTT, EACH EYE, DAILY
     Route: 047

REACTIONS (9)
  - ELECTROLYTE DEPLETION [None]
  - NIGHT SWEATS [None]
  - ASTHENIA [None]
  - BLOOD SODIUM DECREASED [None]
  - ARTHRALGIA [None]
  - BLOOD POTASSIUM DECREASED [None]
  - OEDEMA PERIPHERAL [None]
  - DRY EYE [None]
  - INTRAOCULAR PRESSURE INCREASED [None]
